FAERS Safety Report 6125775-5 (Version None)
Quarter: 2009Q1

REPORT INFORMATION
  Report Type: 
  Country: None (occurrence: None)
  Receive Date: 20090318
  Receipt Date: 20090316
  Transmission Date: 20090719
  Serious: Yes (Hospitalization)
  Sender: FDA-Public Use
  Company Number: SP02295

PATIENT
  Age: 40 Year
  Sex: Female

DRUGS (5)
  1. MOVIPREP [Suspect]
     Indication: COLONOSCOPY
     Dosage: ORAL
     Route: 048
     Dates: start: 20090226
  2. NASONEX [Concomitant]
  3. SERETIDE [Concomitant]
  4. VENTOLIN [Concomitant]
  5. YASMIN [Concomitant]

REACTIONS (2)
  - ANGIOEDEMA [None]
  - DERMATITIS ALLERGIC [None]
